FAERS Safety Report 7962609-8 (Version None)
Quarter: 2011Q4

REPORT INFORMATION
  Report Type: 
  Country: None (occurrence: None)
  Receive Date: 20111207
  Receipt Date: 20111202
  Transmission Date: 20120403
  Serious: Yes (Hospitalization, Other)
  Sender: FDA-Public Use
  Company Number: US-RB-031003-11

PATIENT
  Age: 75 Year
  Sex: Male

DRUGS (1)
  1. MUCINEX DM [Suspect]
     Indication: PRODUCT USED FOR UNKNOWN INDICATION
     Dosage: TOOK 24 TABLETS IN 5 TO 6 DAYS
     Route: 048
     Dates: start: 20111123, end: 20111128

REACTIONS (8)
  - TREMOR [None]
  - INSOMNIA [None]
  - ANGER [None]
  - MOOD SWINGS [None]
  - ACCIDENTAL OVERDOSE [None]
  - PSYCHOMOTOR HYPERACTIVITY [None]
  - CONFUSIONAL STATE [None]
  - SPEECH DISORDER [None]
